FAERS Safety Report 16411415 (Version 1)
Quarter: 2019Q2

REPORT INFORMATION
  Report Type: Report from Study
  Country: US (occurrence: US)
  Receive Date: 20190610
  Receipt Date: 20190610
  Transmission Date: 20190711
  Serious: Yes (Hospitalization)
  Sender: FDA-Public Use
  Company Number: US-EISAI MEDICAL RESEARCH-EC-2018-047584

PATIENT
  Age: 76 Year
  Sex: Male
  Weight: 104.32 kg

DRUGS (19)
  1. CHONDROITIN SULFATE [Concomitant]
     Active Substance: CHONDROITIN SULFATE (BOVINE)
  2. CEPHALEXIN. [Concomitant]
     Active Substance: CEPHALEXIN
  3. LASIX [Concomitant]
     Active Substance: FUROSEMIDE
  4. ASPIRIN. [Concomitant]
     Active Substance: ASPIRIN
  5. COLCHICINE. [Concomitant]
     Active Substance: COLCHICINE
  6. LEVOTHYROXINE. [Concomitant]
     Active Substance: LEVOTHYROXINE
  7. FUROSEMIDE. [Concomitant]
     Active Substance: FUROSEMIDE
  8. VITAMIN C [Concomitant]
     Active Substance: ASCORBIC ACID
  9. VITAMIN E + A OIL [Concomitant]
  10. ALLOPURINOL. [Concomitant]
     Active Substance: ALLOPURINOL
  11. SIMVASTATIN. [Concomitant]
     Active Substance: SIMVASTATIN
  12. B COMPLEX TABLET [Concomitant]
  13. POTASSIUM [Concomitant]
     Active Substance: POTASSIUM
  14. BIOTIN-D [Concomitant]
  15. SPIRONOLACTONE. [Concomitant]
     Active Substance: SPIRONOLACTONE
  16. LENVIMA [Suspect]
     Active Substance: LENVATINIB
     Indication: THYROID CANCER
     Route: 048
     Dates: start: 20181023
  17. PENTOXIFYLLINE. [Concomitant]
     Active Substance: PENTOXIFYLLINE
  18. PLAVIX [Concomitant]
     Active Substance: CLOPIDOGREL BISULFATE
  19. PILOCARPINE 1% [Concomitant]
     Active Substance: PILOCARPINE

REACTIONS (8)
  - Dehydration [Unknown]
  - Arthralgia [Not Recovered/Not Resolved]
  - Decreased appetite [Not Recovered/Not Resolved]
  - Abdominal pain upper [Not Recovered/Not Resolved]
  - Dysphonia [Unknown]
  - Fatigue [Not Recovered/Not Resolved]
  - Diarrhoea [Unknown]
  - Headache [Not Recovered/Not Resolved]

NARRATIVE: CASE EVENT DATE: 2018
